FAERS Safety Report 12354947 (Version 1)
Quarter: 2016Q2

REPORT INFORMATION
  Report Type: Spontaneous
  Country: FR (occurrence: FR)
  Receive Date: 20160511
  Receipt Date: 20160511
  Transmission Date: 20160815
  Serious: Yes (Other)
  Sender: FDA-Public Use
  Company Number: FR-ELI_LILLY_AND_COMPANY-FR201605002620

PATIENT
  Sex: Male

DRUGS (2)
  1. OXALIPLATIN. [Suspect]
     Active Substance: OXALIPLATIN
     Indication: CARCINOID TUMOUR PULMONARY
     Dosage: 100 MG/M2, CYCLICAL
     Route: 042
  2. GEMCITABINE HYDROCHLORIDE. [Suspect]
     Active Substance: GEMCITABINE HYDROCHLORIDE
     Indication: CARCINOID TUMOUR PULMONARY
     Dosage: 1000 MG/M2, CYCLICAL
     Route: 042

REACTIONS (1)
  - Acute leukaemia [Unknown]
